FAERS Safety Report 20794170 (Version 1)
Quarter: 2022Q2

REPORT INFORMATION
  Report Type: Spontaneous
  Country: US (occurrence: US)
  Receive Date: 20220506
  Receipt Date: 20220506
  Transmission Date: 20220721
  Serious: No
  Sender: FDA-Public Use
  Company Number: US-AUROBINDO-AUR-APL-2022-002697

PATIENT
  Age: 70 Year
  Sex: Male

DRUGS (2)
  1. DEXTROMETHORPHAN\GUAIFENESIN [Suspect]
     Active Substance: DEXTROMETHORPHAN\GUAIFENESIN
     Indication: Upper-airway cough syndrome
     Dosage: UNK UNK, AS NECESSARY
     Route: 065
     Dates: start: 20220124, end: 20220125
  2. DEXTROMETHORPHAN\GUAIFENESIN [Suspect]
     Active Substance: DEXTROMETHORPHAN\GUAIFENESIN
     Indication: Secretion discharge

REACTIONS (4)
  - Nasal dryness [Unknown]
  - Feeling hot [Unknown]
  - Nervousness [Unknown]
  - Expired product administered [Unknown]
